FAERS Safety Report 18741489 (Version 1)
Quarter: 2021Q1

REPORT INFORMATION
  Report Type: Spontaneous
  Country: US (occurrence: US)
  Receive Date: 20210114
  Receipt Date: 20210114
  Transmission Date: 20210419
  Serious: No
  Sender: FDA-Public Use
  Company Number: US-ABBVIE-20K-163-3533746-00

PATIENT
  Age: 75 Year
  Sex: Male
  Weight: 79.9 kg

DRUGS (18)
  1. LISINOPRIL. [Concomitant]
     Active Substance: LISINOPRIL
     Indication: HYPERTENSION
  2. LEXAPRO [Concomitant]
     Active Substance: ESCITALOPRAM OXALATE
     Indication: DEPRESSION
  3. CLEARLAX [Concomitant]
     Active Substance: POLYETHYLENE GLYCOL 3350
     Indication: CONSTIPATION
  4. ATORVASTATIN [Concomitant]
     Active Substance: ATORVASTATIN
     Indication: BLOOD CHOLESTEROL INCREASED
  5. ROPINIROLE. [Concomitant]
     Active Substance: ROPINIROLE
     Indication: PARKINSON^S DISEASE
  6. ASPIRIN. [Concomitant]
     Active Substance: ASPIRIN
     Indication: CEREBROVASCULAR ACCIDENT
  7. IBUPROFEN. [Concomitant]
     Active Substance: IBUPROFEN
     Indication: ARTHRALGIA
  8. NUPLAZID [Concomitant]
     Active Substance: PIMAVANSERIN TARTRATE
     Indication: PARKINSON^S DISEASE
  9. NUPLAZID [Concomitant]
     Active Substance: PIMAVANSERIN TARTRATE
     Indication: HALLUCINATION
  10. FISH OIL [Concomitant]
     Active Substance: FISH OIL
     Indication: PRODUCT USED FOR UNKNOWN INDICATION
  11. XANAX [Concomitant]
     Active Substance: ALPRAZOLAM
     Indication: DEPRESSION
  12. DUOPA [Suspect]
     Active Substance: CARBIDOPA\LEVODOPA
     Indication: PARKINSON^S DISEASE
     Route: 050
     Dates: start: 201809
  13. RASAGILINE. [Concomitant]
     Active Substance: RASAGILINE
     Indication: PARKINSON^S DISEASE
  14. ACETAMINOPHEN. [Concomitant]
     Active Substance: ACETAMINOPHEN
     Indication: ARTHRALGIA
  15. DUOPA [Suspect]
     Active Substance: CARBIDOPA\LEVODOPA
  16. KETOCONAZOLE. [Concomitant]
     Active Substance: KETOCONAZOLE
     Indication: DERMATITIS
  17. ELIDEL [Concomitant]
     Active Substance: PIMECROLIMUS
     Indication: DERMATITIS
  18. KETOCONAZOLE. [Concomitant]
     Active Substance: KETOCONAZOLE
     Indication: DERMATITIS

REACTIONS (4)
  - Stoma site irritation [Recovering/Resolving]
  - Stoma site erythema [Recovering/Resolving]
  - Stoma site discharge [Recovering/Resolving]
  - Device occlusion [Recovered/Resolved]

NARRATIVE: CASE EVENT DATE: 2020
